FAERS Safety Report 9217866 (Version 1)
Quarter: 2013Q2

REPORT INFORMATION
  Report Type: Spontaneous
  Country: JP (occurrence: JP)
  Receive Date: 20130408
  Receipt Date: 20130408
  Transmission Date: 20140414
  Serious: Yes (Hospitalization)
  Sender: FDA-Public Use
  Company Number: JP-BAYER-2013-032316

PATIENT
  Age: 82 Year
  Sex: Female
  Weight: 29 kg

DRUGS (6)
  1. BAYASPIRIN [Suspect]
     Indication: MYOCARDIAL ISCHAEMIA
     Dosage: DAILY DOSE 100 MG
     Route: 048
     Dates: start: 20130305, end: 20130311
  2. BAYASPIRIN [Suspect]
     Indication: MYOCARDIAL ISCHAEMIA
     Dosage: DAILY DOSE 100 MG
     Route: 050
     Dates: start: 20130318
  3. FAMOSTAGINE [Suspect]
     Dosage: DAILY DOSE 10 MG
     Route: 050
     Dates: end: 20130312
  4. BIOFERMIN [Concomitant]
     Dosage: DAILY DOSE 3 DF
     Route: 050
     Dates: end: 20130314
  5. BIOFERMIN [Concomitant]
     Dosage: DAILY DOSE 3 DF
     Route: 050
     Dates: start: 20130318
  6. CEFTRIAXONE [Concomitant]
     Indication: PNEUMONIA

REACTIONS (1)
  - Hypoglycaemia [Recovered/Resolved]
